FAERS Safety Report 9010281 (Version 1)
Quarter: 2013Q1

REPORT INFORMATION
  Report Type: Spontaneous
  Country: US (occurrence: US)
  Receive Date: 20130110
  Receipt Date: 20130110
  Transmission Date: 20140127
  Serious: No
  Sender: FDA-Public Use
  Company Number: US-BIOGENIDEC-2013BI001514

PATIENT
  Age: 46 Year
  Sex: Female

DRUGS (1)
  1. TYSABRI [Suspect]
     Indication: MULTIPLE SCLEROSIS
     Route: 042
     Dates: start: 20121231

REACTIONS (5)
  - Rhinorrhoea [Not Recovered/Not Resolved]
  - Feeling jittery [Not Recovered/Not Resolved]
  - Paraesthesia [Not Recovered/Not Resolved]
  - Multiple sclerosis [Unknown]
  - Nausea [Not Recovered/Not Resolved]
